FAERS Safety Report 10886305 (Version 1)
Quarter: 2015Q1

REPORT INFORMATION
  Report Type: Spontaneous
  Country: US (occurrence: US)
  Receive Date: 20150304
  Receipt Date: 20150304
  Transmission Date: 20150721
  Serious: No
  Sender: FDA-Public Use
  Company Number: US-BAYER-2015-032642

PATIENT
  Age: 77 Year
  Sex: Female
  Weight: 58.5 kg

DRUGS (4)
  1. CALTRATE [CALCIUM CARBONATE] [Concomitant]
     Dosage: UNK
  2. CENTRUM SILVER [Concomitant]
     Active Substance: VITAMINS
     Dosage: UNK
  3. ALEVE [Suspect]
     Active Substance: NAPROXEN SODIUM
     Indication: ANALGESIC THERAPY
     Dosage: 4 DF, UNK
     Route: 048
     Dates: start: 2011
  4. ALEVE [Suspect]
     Active Substance: NAPROXEN SODIUM
     Indication: ANALGESIC THERAPY
     Dosage: 1 - 2 DF, PRN
     Route: 048
     Dates: start: 2011

REACTIONS (1)
  - Extra dose administered [None]
